FAERS Safety Report 16652685 (Version 1)
Quarter: 2019Q3

REPORT INFORMATION
  Report Type: Spontaneous
  Country: IR (occurrence: IR)
  Receive Date: 20190731
  Receipt Date: 20190731
  Transmission Date: 20191004
  Serious: Yes (Hospitalization)
  Sender: FDA-Public Use
  Company Number: PHHY2019IR173070

PATIENT
  Sex: Female

DRUGS (2)
  1. METHOTREXATE. [Suspect]
     Active Substance: METHOTREXATE
     Indication: SYSTEMIC LUPUS ERYTHEMATOSUS
  2. METHOTREXATE. [Suspect]
     Active Substance: METHOTREXATE
     Indication: PSORIASIS
     Dosage: 10 MG, QW
     Route: 065

REACTIONS (5)
  - Gastrointestinal haemorrhage [Unknown]
  - Product use in unapproved indication [Unknown]
  - Toxicity to various agents [Unknown]
  - Skin lesion [Unknown]
  - Mucosal disorder [Unknown]
